FAERS Safety Report 23298500 (Version 3)
Quarter: 2024Q1

REPORT INFORMATION
  Report Type: Spontaneous
  Country: US (occurrence: None)
  Receive Date: 20231214
  Receipt Date: 20240117
  Transmission Date: 20240409
  Serious: No
  Sender: FDA-Public Use
  Company Number: 2023A281313

PATIENT

DRUGS (2)
  1. FASENRA [Suspect]
     Active Substance: BENRALIZUMAB
     Indication: Asthma
     Dosage: 30.0MG/ML UNKNOWN
     Route: 058
  2. FASENRA [Suspect]
     Active Substance: BENRALIZUMAB
     Indication: Dyspnoea
     Dosage: 30.0MG/ML UNKNOWN
     Route: 058

REACTIONS (5)
  - Nasal congestion [Unknown]
  - Nasopharyngitis [Unknown]
  - Off label use [Unknown]
  - Device malfunction [Unknown]
  - Wrong technique in device usage process [Unknown]
